FAERS Safety Report 7216406-1 (Version None)
Quarter: 2011Q1

REPORT INFORMATION
  Report Type: 
  Country: None (occurrence: None)
  Receive Date: 20110105
  Receipt Date: 20110105
  Transmission Date: 20110831
  Serious: No
  Sender: FDA-Public Use
  Company Number: None

PATIENT
  Age: 34 Year
  Sex: Female
  Weight: 63.9572 kg

DRUGS (1)
  1. ESTRADERM [Suspect]
     Indication: HOT FLUSH
     Dates: start: 20090820, end: 20100320

REACTIONS (2)
  - APPLICATION SITE SCAR [None]
  - PRODUCT ADHESION ISSUE [None]
